FAERS Safety Report 12269154 (Version 1)
Quarter: 2016Q2

REPORT INFORMATION
  Report Type: Spontaneous
  Country: FR (occurrence: FR)
  Receive Date: 20160414
  Receipt Date: 20160414
  Transmission Date: 20160815
  Serious: Yes (Disabling)
  Sender: FDA-Public Use
  Company Number: FR-ELI_LILLY_AND_COMPANY-FR201604003274

PATIENT
  Age: 68 Year
  Sex: Female

DRUGS (10)
  1. GRANOCYTE [Suspect]
     Active Substance: LENOGRASTIM
     Indication: PRODUCT USED FOR UNKNOWN INDICATION
     Dosage: 34 MILLION IU, UNKNOWN
     Route: 065
     Dates: start: 20150904, end: 20150906
  2. ERBITUX [Suspect]
     Active Substance: CETUXIMAB
     Indication: RECTAL ADENOCARCINOMA
     Dosage: 400 MG, OTHER EVERY 15 DAYS
     Route: 042
     Dates: start: 20150929
  3. PLITICAN [Suspect]
     Active Substance: ALIZAPRIDE HYDROCHLORIDE
     Indication: VOMITING
     Dosage: 100 MG, UNKNOWN
     Route: 042
     Dates: start: 20150929, end: 20150929
  4. IRINOTECAN HOSPIRA [Suspect]
     Active Substance: IRINOTECAN
     Indication: RECTAL ADENOCARCINOMA
     Dosage: 220 MG, OTHER EVERY 15 DAYS
     Route: 042
     Dates: start: 20150929
  5. ZOPHREN                            /00955301/ [Suspect]
     Active Substance: ONDANSETRON
     Indication: VOMITING
     Dosage: 8 DF, UNKNOWN
     Route: 042
     Dates: start: 20150929, end: 20150929
  6. ATROPINE SULATE [Suspect]
     Active Substance: ATROPINE SULFATE
     Indication: PRODUCT USED FOR UNKNOWN INDICATION
     Dosage: 0.25 DF, UNKNOWN
     Route: 042
     Dates: start: 20150929, end: 20150929
  7. FLUOROURACIL ACCORD [Suspect]
     Active Substance: FLUOROURACIL
     Indication: RECTAL ADENOCARCINOMA
     Dosage: 4750 MG, OTHER EVERY 15 DAYS
     Route: 042
     Dates: start: 20150929
  8. ELVORINE [Suspect]
     Active Substance: LEUCOVORIN CALCIUM
     Indication: RECTAL ADENOCARCINOMA
     Dosage: 284 MG, OTHER EVERY 15 DAYS
     Route: 042
     Dates: start: 20150929
  9. METHYLPREDNISOLONE. [Suspect]
     Active Substance: METHYLPREDNISOLONE
     Indication: VOMITING
     Dosage: 60 MG, UNKNOWN
     Route: 042
     Dates: start: 20150929, end: 20150929
  10. POLARAMINE [Suspect]
     Active Substance: DEXCHLORPHENIRAMINE MALEATE
     Indication: URTICARIA
     Dosage: 10 MG, UNKNOWN
     Route: 042
     Dates: start: 20150929, end: 20150929

REACTIONS (4)
  - Urinary retention [Recovering/Resolving]
  - Vomiting [None]
  - Urticaria [None]
  - Faecaloma [None]

NARRATIVE: CASE EVENT DATE: 201510
